FAERS Safety Report 9112297 (Version 2)
Quarter: 2014Q4

REPORT INFORMATION
  Report Type: Spontaneous
  Country: US (occurrence: US)
  Receive Date: 20130219
  Receipt Date: 20141205
  Transmission Date: 20150529
  Serious: Yes (Other)
  Sender: FDA-Public Use
  Company Number: US-BRISTOL-MYERS SQUIBB COMPANY-17023185

PATIENT
  Age: 50 Year
  Sex: Female
  Weight: 70.29 kg

DRUGS (1)
  1. ABATACEPT SUBQ INJECTION 125MG/ML [Suspect]
     Active Substance: ABATACEPT
     Indication: RHEUMATOID ARTHRITIS
     Dosage: LAST INJ: 4OCT12
     Route: 058

REACTIONS (10)
  - Pneumonia [Unknown]
  - Visual impairment [Unknown]
  - Night sweats [Unknown]
  - Headache [Unknown]
  - Fatigue [Unknown]
  - Dizziness [Unknown]
  - Nausea [Unknown]
  - Injection site urticaria [Unknown]
  - Bronchitis [Unknown]
  - Arthritis [Unknown]

NARRATIVE: CASE EVENT DATE: 20121005
